FAERS Safety Report 26006349 (Version 1)
Quarter: 2025Q4

REPORT INFORMATION
  Report Type: Spontaneous
  Country: US (occurrence: US)
  Receive Date: 20251106
  Receipt Date: 20251106
  Transmission Date: 20260117
  Serious: Yes (Hospitalization, Other)
  Sender: HIKMA
  Company Number: US-HIKMA PHARMACEUTICALS USA INC.-US-H14001-25-02488

PATIENT
  Sex: Male

DRUGS (2)
  1. FLUPHENAZINE DECANOATE [Suspect]
     Active Substance: FLUPHENAZINE DECANOATE
     Indication: Product used for unknown indication
     Dosage: UNKNOWN (FIRST SHOT)
     Route: 065
     Dates: start: 20250120
  2. FLUPHENAZINE DECANOATE [Suspect]
     Active Substance: FLUPHENAZINE DECANOATE
     Dosage: UNKNOWN (SECOND SHOT)
     Route: 065
     Dates: start: 20250206

REACTIONS (8)
  - Pain in extremity [Not Recovered/Not Resolved]
  - Condition aggravated [Not Recovered/Not Resolved]
  - Catatonia [Unknown]
  - Weight decreased [Unknown]
  - Feeding disorder [Unknown]
  - Fluid intake reduced [Unknown]
  - Decreased activity [Unknown]
  - Gait disturbance [Unknown]
